FAERS Safety Report 8793446 (Version 2)
Quarter: 2013Q4

REPORT INFORMATION
  Report Type: Spontaneous
  Country: US (occurrence: US)
  Receive Date: 20120918
  Receipt Date: 20131101
  Transmission Date: 20140711
  Serious: No
  Sender: FDA-Public Use
  Company Number: US-009507513-1208USA008279

PATIENT
  Sex: Female

DRUGS (3)
  1. PEGINTRON [Suspect]
     Dosage: 120 MICROGRAM PER KILOGRAM, UNK
     Route: 058
     Dates: start: 20120725
  2. TELAPREVIR [Suspect]
     Dosage: 750 MG, UNK
     Route: 048
  3. RIBASPHERE [Suspect]
     Dosage: 600MG AM, 400MG PM
     Route: 048

REACTIONS (2)
  - Fatigue [Unknown]
  - Alopecia [Unknown]
